FAERS Safety Report 9490654 (Version 3)
Quarter: 2013Q3

REPORT INFORMATION
  Report Type: Spontaneous
  Country: NO (occurrence: NO)
  Receive Date: 20130830
  Receipt Date: 20130925
  Transmission Date: 20140515
  Serious: Yes (Other)
  Sender: FDA-Public Use
  Company Number: PHHY2013NO094361

PATIENT
  Sex: Female

DRUGS (6)
  1. LEPONEX [Suspect]
     Indication: SCHIZOPHRENIA
     Dosage: 350 MG (50+300 MG), UNK
     Route: 048
  2. LEPONEX [Suspect]
     Dosage: 300 MG, UNK
  3. TOPIMAX [Concomitant]
     Indication: MOOD ALTERED
     Dosage: 100 MG, BID
     Route: 048
     Dates: start: 201306
  4. LEVAXIN [Concomitant]
     Indication: HYPOTHYROIDISM
     Dosage: 50 UG, QD
     Route: 048
  5. CIRCADIN [Concomitant]
     Indication: SLEEP DISORDER
     Dosage: 2 MG, QD
     Route: 048
     Dates: start: 2008
  6. RIVOTRIL [Concomitant]
     Indication: ANXIETY
     Dosage: 0.5 MG, UNK
     Dates: start: 2008

REACTIONS (2)
  - Cough [Not Recovered/Not Resolved]
  - Salivary hypersecretion [Not Recovered/Not Resolved]
